FAERS Safety Report 6279770-6 (Version None)
Quarter: 2009Q3

REPORT INFORMATION
  Report Type: 
  Country: None (occurrence: None)
  Receive Date: 20090723
  Receipt Date: 20090623
  Transmission Date: 20100115
  Serious: No
  Sender: FDA-Public Use
  Company Number: US-BAYER-200924392NA

PATIENT
  Age: 46 Year
  Sex: Female
  Weight: 48 kg

DRUGS (1)
  1. MAGNEVIST PHARMACY BULK PACK [Suspect]
     Indication: ANGIOGRAM
     Dosage: TOTAL DAILY DOSE: 17 ML
     Route: 042
     Dates: start: 20090611, end: 20090611

REACTIONS (2)
  - ERYTHEMA [None]
  - PRURITUS [None]
